FAERS Safety Report 13528722 (Version 1)
Quarter: 2017Q2

REPORT INFORMATION
  Report Type: Spontaneous
  Country: US (occurrence: US)
  Receive Date: 20170509
  Receipt Date: 20170509
  Transmission Date: 20170830
  Serious: No
  Sender: FDA-Public Use
  Company Number: US-PFIZER INC-2017201450

PATIENT
  Sex: Female

DRUGS (1)
  1. XELJANZ [Suspect]
     Active Substance: TOFACITINIB CITRATE
     Dosage: UNK

REACTIONS (22)
  - Peripheral swelling [Unknown]
  - Arthralgia [Unknown]
  - Hypoaesthesia [Unknown]
  - Joint range of motion decreased [Unknown]
  - Skin mass [Unknown]
  - Psoriasis [Unknown]
  - Pain in extremity [Unknown]
  - Hand deformity [Unknown]
  - Insomnia [Unknown]
  - Muscular weakness [Unknown]
  - Neck pain [Unknown]
  - Fatigue [Unknown]
  - Musculoskeletal discomfort [Unknown]
  - Sneezing [Unknown]
  - Limb discomfort [Unknown]
  - Exercise tolerance decreased [Unknown]
  - Muscle rigidity [Unknown]
  - Musculoskeletal stiffness [Unknown]
  - Rash [Unknown]
  - Joint stiffness [Unknown]
  - Muscle spasms [Unknown]
  - Sinus congestion [Unknown]
